FAERS Safety Report 21529300 (Version 1)
Quarter: 2022Q4

REPORT INFORMATION
  Report Type: Spontaneous
  Country: GB (occurrence: GB)
  Receive Date: 20221031
  Receipt Date: 20221031
  Transmission Date: 20230113
  Serious: Yes (Hospitalization)
  Sender: FDA-Public Use
  Company Number: GB-SLATE RUN PHARMACEUTICALS-22GB001395

PATIENT

DRUGS (7)
  1. EPLERENONE [Suspect]
     Active Substance: EPLERENONE
     Indication: Congestive cardiomyopathy
     Dosage: 25 MILLIGRAM, QD
  2. FUROSEMIDE [Suspect]
     Active Substance: FUROSEMIDE
     Indication: Congestive cardiomyopathy
     Dosage: 40 MILLIGRAM, QD
  3. FUROSEMIDE [Suspect]
     Active Substance: FUROSEMIDE
     Dosage: 40 MILLIGRAM, BID
  4. BISOPROLOL [Suspect]
     Active Substance: BISOPROLOL
     Indication: Congestive cardiomyopathy
     Dosage: 5 MILLIGRAM, QD
  5. ENTRESTO [Suspect]
     Active Substance: SACUBITRIL\VALSARTAN
     Indication: Congestive cardiomyopathy
     Dosage: 97/103, BID
  6. APIXABAN [Suspect]
     Active Substance: APIXABAN
     Indication: Congestive cardiomyopathy
     Dosage: 5 MILLIGRAM, BID
  7. DAPAGLIFLOZIN [Suspect]
     Active Substance: DAPAGLIFLOZIN
     Indication: Congestive cardiomyopathy
     Dosage: UNK

REACTIONS (3)
  - Congestive cardiomyopathy [Recovered/Resolved]
  - Coronary artery stenosis [Recovered/Resolved]
  - Atrial fibrillation [Recovered/Resolved]
